FAERS Safety Report 23820965 (Version 1)
Quarter: 2024Q2

REPORT INFORMATION
  Report Type: Spontaneous
  Country: US (occurrence: None)
  Receive Date: 20240503
  Receipt Date: 20240503
  Transmission Date: 20240716
  Serious: No
  Sender: FDA-Public Use
  Company Number: None

PATIENT
  Age: 44 Year
  Sex: Female

DRUGS (1)
  1. VERZENIO [Suspect]
     Active Substance: ABEMACICLIB
     Dosage: FREQUENCY : TWICE A DAY;?
     Route: 048
     Dates: start: 202303

REACTIONS (4)
  - Interstitial lung disease [None]
  - Palpitations [None]
  - Dizziness [None]
  - Pneumonitis [None]

NARRATIVE: CASE EVENT DATE: 20240401
